FAERS Safety Report 24578894 (Version 1)
Quarter: 2024Q4

REPORT INFORMATION
  Report Type: Report from Study
  Country: US (occurrence: US)
  Receive Date: 20241105
  Receipt Date: 20241105
  Transmission Date: 20250115
  Serious: Yes (Other)
  Sender: SPECGX
  Company Number: US-SPECGX-T202402145

PATIENT
  Sex: Female

DRUGS (3)
  1. PAMELOR [Suspect]
     Active Substance: NORTRIPTYLINE HYDROCHLORIDE
     Indication: Product used for unknown indication
     Dosage: UNK
     Route: 065
  2. CORTICOTROPIN [Suspect]
     Active Substance: CORTICOTROPIN
     Indication: Punctate keratitis
     Dosage: 80 UNITS, EVERY 72 HOURS
     Route: 058
  3. OXERVATE [Suspect]
     Active Substance: CENEGERMIN-BKBJ
     Indication: Punctate keratitis
     Dosage: UNK
     Route: 065

REACTIONS (29)
  - Bedridden [Unknown]
  - Amniotic membrane graft [Unknown]
  - Dyspnoea [Unknown]
  - Blood sodium decreased [Recovering/Resolving]
  - Atrial septal defect [Unknown]
  - Punctate keratitis [Unknown]
  - Eye injury [Unknown]
  - Ocular surface stem cell transplant rejection [Unknown]
  - Dry eye [Unknown]
  - Illness [Unknown]
  - Post-traumatic stress disorder [Unknown]
  - Depression [Unknown]
  - Asthma [Unknown]
  - Apathy [Unknown]
  - Agoraphobia [Unknown]
  - Blood sodium increased [Recovering/Resolving]
  - Blood urea increased [Recovering/Resolving]
  - Blood creatinine increased [Recovering/Resolving]
  - Protein total decreased [Unknown]
  - Fluid retention [Unknown]
  - Oedema peripheral [Unknown]
  - Pollakiuria [Unknown]
  - Weight decreased [Unknown]
  - Insomnia [Unknown]
  - Palpitations [Unknown]
  - Anxiety [Unknown]
  - Irritability [Unknown]
  - Eye swelling [Unknown]
  - Product dose omission issue [Unknown]
